FAERS Safety Report 21200148 (Version 3)
Quarter: 2022Q3

REPORT INFORMATION
  Report Type: Spontaneous
  Country: US (occurrence: US)
  Receive Date: 20220811
  Receipt Date: 20220914
  Transmission Date: 20221027
  Serious: No
  Sender: FDA-Public Use
  Company Number: US-GSKCCFUS-Case-01460001_AE-83620

PATIENT
  Age: 67 Year
  Sex: Female

DRUGS (1)
  1. KRINTAFEL [Suspect]
     Active Substance: TAFENOQUINE SUCCINATE
     Indication: Product used for unknown indication
     Dosage: 150 MG, WE
     Route: 048
     Dates: start: 20220801

REACTIONS (5)
  - Malaise [Not Recovered/Not Resolved]
  - Drug ineffective [Unknown]
  - Incorrect dose administered [Unknown]
  - Product administration error [Unknown]
  - Product storage error [Unknown]

NARRATIVE: CASE EVENT DATE: 20220801
